FAERS Safety Report 24589778 (Version 2)
Quarter: 2025Q1

REPORT INFORMATION
  Report Type: Spontaneous
  Country: BY (occurrence: BY)
  Receive Date: 20241107
  Receipt Date: 20250129
  Transmission Date: 20250408
  Serious: Yes (Hospitalization)
  Sender: DR REDDYS
  Company Number: BY-RDY-LIT/BLR/24/0016557

PATIENT
  Age: 54 Year
  Sex: Female

DRUGS (3)
  1. LEVOCETIRIZINE [Suspect]
     Active Substance: LEVOCETIRIZINE
     Indication: Urticaria chronic
     Dosage: FOR 1 MONTH
  2. KETOTIFEN [Suspect]
     Active Substance: KETOTIFEN
     Indication: Urticaria chronic
     Dosage: 1 TABLET 2 TIMES DAILY FOR 1-2 MONTHS
  3. DOXYLAMINE [Suspect]
     Active Substance: DOXYLAMINE
     Indication: Urticaria chronic
     Dosage: 150 MG, 1 TABLET AT THE BEDTIME FOR 2 WEEKS

REACTIONS (2)
  - Condition aggravated [Recovered/Resolved]
  - Drug ineffective [Unknown]
